FAERS Safety Report 20011391 (Version 1)
Quarter: 2021Q4

REPORT INFORMATION
  Report Type: Spontaneous
  Country: KP (occurrence: KP)
  Receive Date: 20211028
  Receipt Date: 20211028
  Transmission Date: 20220303
  Serious: Yes (Other)
  Sender: FDA-Public Use
  Company Number: KP-PRINSTON PHARMACEUTICAL INC.-2021PRN00383

PATIENT
  Age: 69 Year
  Sex: Female

DRUGS (6)
  1. LEVETIRACETAM [Suspect]
     Active Substance: LEVETIRACETAM
     Indication: Status epilepticus
     Dosage: 1000 MG, 1X/DAY
     Route: 048
  2. PHENYTOIN [Suspect]
     Active Substance: PHENYTOIN
     Indication: Status epilepticus
     Dosage: 900 MG, 1X/DAY
     Route: 042
  3. PHENYTOIN [Suspect]
     Active Substance: PHENYTOIN
     Dosage: 300 MG 1X/DAY
     Route: 065
  4. PHENYTOIN [Suspect]
     Active Substance: PHENYTOIN
     Dosage: 200 MG 1X/DAY
     Route: 065
  5. DONEPEZIL [Suspect]
     Active Substance: DONEPEZIL
     Indication: Dementia Alzheimer^s type
     Route: 065
  6. MEMANTINE [Concomitant]
     Active Substance: MEMANTINE
     Indication: Dementia Alzheimer^s type
     Route: 065

REACTIONS (2)
  - Drug interaction [Recovered/Resolved]
  - Tremor [Recovered/Resolved]
